FAERS Safety Report 21370992 (Version 2)
Quarter: 2022Q3

REPORT INFORMATION
  Report Type: Report from Study
  Country: FR (occurrence: None)
  Receive Date: 20220923
  Receipt Date: 20220927
  Transmission Date: 20221027
  Serious: Yes (Death)
  Sender: FDA-Public Use
  Company Number: 2022A325955

PATIENT
  Age: 921 Month
  Sex: Male
  Weight: 76 kg

DRUGS (2)
  1. EVUSHELD [Suspect]
     Active Substance: CILGAVIMAB\TIXAGEVIMAB
     Indication: Prophylaxis
     Dosage: ONCE/SINGLE ADMINISTRATION
     Route: 030
     Dates: start: 20220210, end: 20220210
  2. ACALABRUTINIB [Concomitant]
     Active Substance: ACALABRUTINIB

REACTIONS (2)
  - Death [Fatal]
  - Product use issue [Unknown]

NARRATIVE: CASE EVENT DATE: 20220210
